FAERS Safety Report 10540095 (Version 1)
Quarter: 2014Q4

REPORT INFORMATION
  Report Type: Spontaneous
  Country: US (occurrence: None)
  Receive Date: 20141022
  Receipt Date: 20141022
  Transmission Date: 20150529
  Serious: Yes (Hospitalization)
  Sender: FDA-Public Use
  Company Number: US-ALKEM-000746

PATIENT
  Age: 26 Year
  Sex: Male

DRUGS (3)
  1. METOPROLOL [Suspect]
     Active Substance: METOPROLOL
  2. LISINOPRIL. [Suspect]
     Active Substance: LISINOPRIL
  3. AMLODIPINE [Suspect]
     Active Substance: AMLODIPINE BESYLATE

REACTIONS (9)
  - Acute respiratory failure [None]
  - Acute kidney injury [None]
  - Fluid overload [None]
  - Hyperkalaemia [None]
  - Acidosis [None]
  - Hypertension [None]
  - Pulmonary oedema [None]
  - Bradycardia [None]
  - Intentional overdose [None]
